FAERS Safety Report 9010056 (Version 1)
Quarter: 2013Q1

REPORT INFORMATION
  Report Type: Spontaneous
  Country: BR (occurrence: BR)
  Receive Date: 20130110
  Receipt Date: 20130110
  Transmission Date: 20140127
  Serious: Yes (Death, Hospitalization, Disabling)
  Sender: FDA-Public Use
  Company Number: BR-B.I. PHARMACEUTICALS,INC./RIDGEFIELD-2013-BR-00021BR

PATIENT
  Age: 96 None
  Sex: Female

DRUGS (3)
  1. MICARDIS [Suspect]
     Indication: HYPERTENSION
     Dosage: 80 MG
     Route: 048
     Dates: end: 20121227
  2. INDAPEN [Concomitant]
     Indication: HYPERTENSION
     Dates: start: 2010, end: 20121227
  3. TENSALIV [Concomitant]
     Indication: HYPERTENSION
     Dates: start: 2010, end: 20121227

REACTIONS (5)
  - Respiratory rate decreased [Fatal]
  - Pneumonia [Not Recovered/Not Resolved]
  - Femur fracture [Recovered/Resolved]
  - Dysphagia [Not Recovered/Not Resolved]
  - Asthenia [Not Recovered/Not Resolved]
